FAERS Safety Report 4426072-6 (Version None)
Quarter: 2004Q3

REPORT INFORMATION
  Report Type: 
  Country: None (occurrence: None)
  Receive Date: 20040811
  Receipt Date: 20040725
  Transmission Date: 20050211
  Serious: Yes (Hospitalization)
  Sender: FDA-Public Use
  Company Number: S03-JPN-02236-01

PATIENT
  Age: 77 Year
  Sex: Female

DRUGS (3)
  1. MEMANTINE (UNBLINDED)  (MEMANTINE) [Suspect]
     Indication: DEMENTIA ALZHEIMER'S TYPE
     Dosage: 10 MG QD PO
     Route: 048
     Dates: start: 20021220, end: 20030419
  2. AMLODIPINE [Concomitant]
  3. ACARBOSE [Concomitant]

REACTIONS (9)
  - ADRENAL NEOPLASM [None]
  - ANAEMIA [None]
  - BLOOD UREA INCREASED [None]
  - CARDIAC FAILURE [None]
  - CONDITION AGGRAVATED [None]
  - INFLAMMATION [None]
  - LUNG NEOPLASM [None]
  - OESOPHAGEAL ULCER [None]
  - REFLUX OESOPHAGITIS [None]
